FAERS Safety Report 16467917 (Version 1)
Quarter: 2019Q2

REPORT INFORMATION
  Report Type: Spontaneous
  Country: CN (occurrence: CN)
  Receive Date: 20190624
  Receipt Date: 20190624
  Transmission Date: 20190711
  Serious: Yes (Life-Threatening, Hospitalization, Other)
  Sender: FDA-Public Use
  Company Number: CN-SA-2019SA169532

PATIENT
  Age: 26 Year
  Sex: Female

DRUGS (5)
  1. ISONIAZID. [Suspect]
     Active Substance: ISONIAZID
     Dosage: 0.1 G, BID
     Route: 055
     Dates: start: 20190524, end: 20190525
  2. AMIKACIN SULFATE. [Suspect]
     Active Substance: AMIKACIN SULFATE
     Indication: PULMONARY TUBERCULOSIS
     Dosage: 0.6 G, QD
     Route: 041
     Dates: start: 20190520, end: 20190525
  3. LEVOFLOXACIN. [Suspect]
     Active Substance: LEVOFLOXACIN
     Indication: PULMONARY TUBERCULOSIS
     Dosage: 0.5 G, QD
     Route: 041
     Dates: start: 20190517, end: 20190525
  4. RIFAMPICIN [Suspect]
     Active Substance: RIFAMPIN
     Indication: PULMONARY TUBERCULOSIS
     Dosage: 0.45 G, QD
     Route: 048
     Dates: start: 20190521, end: 20190525
  5. ISONIAZID. [Suspect]
     Active Substance: ISONIAZID
     Indication: PULMONARY TUBERCULOSIS
     Dosage: 0.3 G, QD
     Route: 041
     Dates: start: 20190524, end: 20190525

REACTIONS (4)
  - Off label use [Unknown]
  - Acute kidney injury [Unknown]
  - Haemolysis [Unknown]
  - Metabolic acidosis [Unknown]

NARRATIVE: CASE EVENT DATE: 20190525
